FAERS Safety Report 7210305-7 (Version None)
Quarter: 2010Q4

REPORT INFORMATION
  Report Type: 
  Country: None (occurrence: None)
  Receive Date: 20101223
  Receipt Date: 20101203
  Transmission Date: 20110411
  Serious: Yes (Other)
  Sender: FDA-Public Use
  Company Number: 20100549

PATIENT
  Sex: Female
  Weight: 85 kg

DRUGS (1)
  1. VENOFER [Suspect]
     Indication: ANAEMIA OF PREGNANCY
     Dosage: 200 MG IN 250 ML NS INTRAVENOUS DIP
     Route: 041
     Dates: start: 20101120, end: 20101120

REACTIONS (4)
  - INFUSION SITE EXTRAVASATION [None]
  - INFUSION SITE PAIN [None]
  - SKIN DISCOLOURATION [None]
  - SWELLING [None]
